FAERS Safety Report 16313165 (Version 1)
Quarter: 2019Q2

REPORT INFORMATION
  Report Type: Spontaneous
  Country: US (occurrence: US)
  Receive Date: 20190515
  Receipt Date: 20190515
  Transmission Date: 20190711
  Serious: No
  Sender: FDA-Public Use
  Company Number: US-BAYER-2019-091692

PATIENT

DRUGS (5)
  1. TYLENOL [Concomitant]
     Active Substance: ACETAMINOPHEN
  2. BAYER ASPIRIN [Suspect]
     Active Substance: ASPIRIN
     Indication: MIGRAINE
  3. MOTRIN [NAPROXEN] [Concomitant]
     Active Substance: NAPROXEN
  4. ALEVE [Suspect]
     Active Substance: NAPROXEN SODIUM
  5. ANADIN [PARACETAMOL] [Concomitant]
     Indication: MIGRAINE

REACTIONS (2)
  - Product use in unapproved indication [None]
  - Drug ineffective [None]
